FAERS Safety Report 7543329-0 (Version None)
Quarter: 2011Q2

REPORT INFORMATION
  Report Type: 
  Country: None (occurrence: None)
  Receive Date: 20110524
  Receipt Date: 20110125
  Transmission Date: 20111010
  Serious: No
  Sender: FDA-Public Use
  Company Number: 021805

PATIENT
  Sex: Male

DRUGS (2)
  1. CIMZIA [Suspect]
  2. CIMZIA [Suspect]
     Indication: CROHN'S DISEASE
     Dosage: 400 MG 1X/MONTH SUBCUTANEOUS, SUBCUTANEOUS
     Route: 058
     Dates: start: 20090327

REACTIONS (3)
  - DISCOMFORT [None]
  - DIARRHOEA [None]
  - GASTROENTERITIS VIRAL [None]
